FAERS Safety Report 7314825-6 (Version None)
Quarter: 2011Q1

REPORT INFORMATION
  Report Type: 
  Country: None (occurrence: None)
  Receive Date: 20110225
  Receipt Date: 20110119
  Transmission Date: 20110831
  Serious: No
  Sender: FDA-Public Use
  Company Number: US-MYLANLABS-2010S1023721

PATIENT
  Age: 19 Year
  Sex: Female
  Weight: 65.77 kg

DRUGS (3)
  1. AMNESTEEM [Suspect]
     Indication: ACNE CYSTIC
     Dates: start: 20101118, end: 20101220
  2. LEXAPRO [Concomitant]
  3. AMNESTEEM [Suspect]
     Indication: ACNE
     Dates: start: 20101118, end: 20101220

REACTIONS (2)
  - AGITATION [None]
  - ABNORMAL BEHAVIOUR [None]
